FAERS Safety Report 9713466 (Version 1)
Quarter: 2013Q4

REPORT INFORMATION
  Report Type: Spontaneous
  Country: US (occurrence: None)
  Receive Date: 20131125
  Receipt Date: 20131125
  Transmission Date: 20140711
  Serious: No
  Sender: FDA-Public Use
  Company Number: None

PATIENT
  Age: 80 None
  Sex: Male

DRUGS (1)
  1. DABIGATRAN [Suspect]
     Indication: ATRIAL FIBRILLATION
     Dosage: TAKE ONE CAPSULE BY MOUTH VERY 12 HOURS TO PREVENT BLOOD CLOTS
     Route: 048
     Dates: start: 20131105, end: 20131122

REACTIONS (2)
  - Nausea [None]
  - Vomiting [None]
